FAERS Safety Report 7136962-1 (Version None)
Quarter: 2010Q4

REPORT INFORMATION
  Report Type: 
  Country: None (occurrence: None)
  Receive Date: 20101206
  Receipt Date: 20090903
  Transmission Date: 20110411
  Serious: Yes (Other)
  Sender: FDA-Public Use
  Company Number: FR-CELGENEUS-056-21880-10082149

PATIENT
  Age: 62 Year
  Sex: Male

DRUGS (7)
  1. REVLIMID [Suspect]
     Indication: MULTIPLE MYELOMA
     Route: 048
     Dates: start: 20080321, end: 20090318
  2. DISULONE [Concomitant]
     Route: 065
  3. ASPERGIC [Concomitant]
     Route: 065
  4. TAHOR [Concomitant]
     Route: 065
  5. TAREG [Concomitant]
     Route: 065
  6. TERELIT [Concomitant]
     Route: 065
  7. VALACYCLOVIR HYDROCHLORIDE [Concomitant]
     Route: 065

REACTIONS (2)
  - LUNG DISORDER [None]
  - PYREXIA [None]
